FAERS Safety Report 7540204-2 (Version None)
Quarter: 2011Q2

REPORT INFORMATION
  Report Type: 
  Country: None (occurrence: None)
  Receive Date: 20110610
  Receipt Date: 20110530
  Transmission Date: 20111010
  Serious: Yes (Life-Threatening)
  Sender: FDA-Public Use
  Company Number: ES-CELGENEUS-144-50794-11053732

PATIENT
  Age: 49 Year
  Sex: Female

DRUGS (2)
  1. TRANSFUSION [Concomitant]
     Route: 051
     Dates: start: 20091001, end: 20110601
  2. VIDAZA [Suspect]
     Dosage: 75 MILLIGRAM
     Route: 050
     Dates: start: 20091001, end: 20110201

REACTIONS (1)
  - DISEASE PROGRESSION [None]
